FAERS Safety Report 5406599-0 (Version None)
Quarter: 2007Q3

REPORT INFORMATION
  Report Type: 
  Country: None (occurrence: None)
  Receive Date: 20070806
  Receipt Date: 20070725
  Transmission Date: 20080115
  Serious: Yes (Other)
  Sender: FDA-Public Use
  Company Number: US-PFIZER INC-2007061961

PATIENT
  Sex: Female
  Weight: 108.18 kg

DRUGS (15)
  1. TIKOSYN [Suspect]
     Indication: ATRIAL FIBRILLATION
  2. ADVAIR DISKUS 100/50 [Concomitant]
  3. ACTOS [Concomitant]
  4. AVAPRO [Concomitant]
  5. FERROUS SULFATE [Concomitant]
  6. ICAPS [Concomitant]
  7. MELOXICAM [Concomitant]
  8. PREDNISONE TAB [Concomitant]
     Dosage: DAILY DOSE:2MG-FREQ:DAILY
  9. PREVACID [Concomitant]
  10. SERTRALINE [Concomitant]
  11. ZYRTEC [Concomitant]
  12. CRESTOR [Concomitant]
  13. COUMADIN [Concomitant]
  14. FUROSEMIDE [Concomitant]
  15. SKELAXIN [Concomitant]

REACTIONS (5)
  - DYSPNOEA [None]
  - FRACTURE [None]
  - HEART RATE DECREASED [None]
  - TYPE 2 DIABETES MELLITUS [None]
  - UPPER LIMB FRACTURE [None]
